FAERS Safety Report 6661682-7 (Version None)
Quarter: 2010Q1

REPORT INFORMATION
  Report Type: 
  Country: None (occurrence: None)
  Receive Date: 20100331
  Receipt Date: 20090414
  Transmission Date: 20100710
  Serious: Yes (Hospitalization)
  Sender: FDA-Public Use
  Company Number: US-BRISTOL-MYERS SQUIBB COMPANY-14587208

PATIENT

DRUGS (1)
  1. ERBITUX [Suspect]
     Dosage: EXPERIENCED THE EVENTS UPON RECEIVING 4TH DOSE
     Route: 042

REACTIONS (2)
  - DYSPNOEA [None]
  - RESPIRATORY FAILURE [None]
